FAERS Safety Report 23085423 (Version 1)
Quarter: 2023Q4

REPORT INFORMATION
  Report Type: Spontaneous
  Country: FR (occurrence: FR)
  Receive Date: 20231019
  Receipt Date: 20231019
  Transmission Date: 20240110
  Serious: Yes (Hospitalization, Other)
  Sender: FDA-Public Use
  Company Number: None

PATIENT
  Age: 61 Year
  Sex: Female
  Weight: 52 kg

DRUGS (3)
  1. GEMCITABINE HYDROCHLORIDE [Suspect]
     Active Substance: GEMCITABINE HYDROCHLORIDE
     Indication: Cholangiocarcinoma
     Dosage: 1000 MG/M2, EVERY 3 WEEKS (ON DAY 1 AND 8 EVERY 21 DAYS CYCLE)
     Route: 042
     Dates: start: 20230726, end: 20230906
  2. CISPLATIN [Suspect]
     Active Substance: CISPLATIN
     Indication: Cholangiocarcinoma
     Dosage: 25 MG/M2, EVERY 3 WEEKS (ON DAY 1 AND 8 EVERY 21 DAYS CYCLE)
     Route: 042
     Dates: start: 20230726, end: 20230906
  3. IMFINZI [Suspect]
     Active Substance: DURVALUMAB
     Indication: Cholangiocarcinoma
     Dosage: 1500 MG, EVERY 3 WEEKS
     Route: 042
     Dates: start: 20230726, end: 20230906

REACTIONS (2)
  - Immune thrombocytopenia [Recovered/Resolved]
  - Anaemia [Recovered/Resolved]

NARRATIVE: CASE EVENT DATE: 20230804
